FAERS Safety Report 6493495-3 (Version None)
Quarter: 2009Q4

REPORT INFORMATION
  Report Type: 
  Country: None (occurrence: None)
  Receive Date: 20091209
  Receipt Date: 20091203
  Transmission Date: 20100525
  Serious: Yes (Hospitalization)
  Sender: FDA-Public Use
  Company Number: 2009SP039913

PATIENT
  Age: 34 Year
  Sex: Female

DRUGS (1)
  1. NASONEX [Suspect]
     Indication: COUGH
     Dosage: 2 DF; BID; NAS
     Route: 045

REACTIONS (1)
  - PANCREATITIS ACUTE [None]
